FAERS Safety Report 11842150 (Version 1)
Quarter: 2015Q4

REPORT INFORMATION
  Report Type: Other
  Country: US (occurrence: US)
  Receive Date: 20151216
  Receipt Date: 20151216
  Transmission Date: 20160305
  Serious: Yes (Other)
  Sender: FDA-Public Use
  Company Number: US-NEXGEN PHARMA, INC.-1045567

PATIENT
  Sex: Female

DRUGS (1)
  1. NIACIN. [Suspect]
     Active Substance: NIACIN
     Route: 048

REACTIONS (2)
  - Hypotension [Unknown]
  - Flushing [Recovered/Resolved]
